FAERS Safety Report 16874640 (Version 1)
Quarter: 2019Q4

REPORT INFORMATION
  Report Type: Spontaneous
  Country: US (occurrence: US)
  Receive Date: 20191001
  Receipt Date: 20191001
  Transmission Date: 20200122
  Serious: No
  Sender: FDA-Public Use
  Company Number: US-IBSA PHARMA-TSO-2019-0086

PATIENT
  Sex: Female

DRUGS (1)
  1. TIROSINT-SOL [Suspect]
     Active Substance: LEVOTHYROXINE SODIUM
     Indication: PRODUCT USED FOR UNKNOWN INDICATION
     Dosage: 13MCG/ML
     Route: 048

REACTIONS (5)
  - Insomnia [Unknown]
  - Feeling jittery [Unknown]
  - Tremor [Unknown]
  - Heart rate increased [Unknown]
  - Headache [Unknown]
